FAERS Safety Report 7642005-3 (Version None)
Quarter: 2011Q3

REPORT INFORMATION
  Report Type: 
  Country: None (occurrence: None)
  Receive Date: 20110728
  Receipt Date: 20110725
  Transmission Date: 20111222
  Serious: Yes (Death)
  Sender: FDA-Public Use
  Company Number: JP-PFIZER INC-2011114368

PATIENT
  Age: 76 Year
  Sex: Male
  Weight: 63 kg

DRUGS (6)
  1. DOBUTAMINE [Concomitant]
     Dosage: 300 G/DAY
     Route: 042
     Dates: start: 20110501
  2. RESTAMIN [Concomitant]
     Indication: PROPHYLAXIS
     Dosage: 50 MG, 1X/DAY (WITH TEMSIROLIMUS ADMINISTRATION)
     Route: 048
     Dates: start: 20110510, end: 20110524
  3. HACHIAZULE [Concomitant]
     Dosage: 2 G, 3X/DAY
     Dates: start: 20110511
  4. OXYGEN [Concomitant]
     Indication: RENAL CELL CARCINOMA
     Dosage: UNK
     Dates: start: 20110517
  5. TEMSIROLIMUS [Suspect]
     Indication: RENAL CELL CARCINOMA
     Dosage: 25 MG, WEEKLY
     Route: 042
     Dates: start: 20110510, end: 20110524
  6. AFTACH [Concomitant]
     Dosage: UNK
     Route: 061
     Dates: start: 20110518

REACTIONS (2)
  - ATRIOVENTRICULAR BLOCK COMPLETE [None]
  - CARDIAC FAILURE [None]
